FAERS Safety Report 5152283-0 (Version None)
Quarter: 2006Q4

REPORT INFORMATION
  Report Type: 
  Country: None (occurrence: None)
  Receive Date: 20061116
  Receipt Date: 20061110
  Transmission Date: 20070319
  Serious: Yes (Disabling, Other)
  Sender: FDA-Public Use
  Company Number: GB-MERCK-0611GBR00062

PATIENT
  Sex: Male

DRUGS (2)
  1. TIMOPTIC [Suspect]
     Indication: HERPES ZOSTER
     Route: 065
     Dates: start: 20050501, end: 20051101
  2. PREDNISOLONE [Suspect]
     Route: 065
     Dates: start: 20050601, end: 20051101

REACTIONS (3)
  - BLINDNESS [None]
  - BLOOD PHOSPHORUS INCREASED [None]
  - CORNEAL DEPOSITS [None]
